FAERS Safety Report 8844293 (Version 3)
Quarter: 2013Q1

REPORT INFORMATION
  Report Type: Spontaneous
  Country: US (occurrence: US)
  Receive Date: 20121017
  Receipt Date: 20130218
  Transmission Date: 20140127
  Serious: Yes (Life-Threatening, Hospitalization, Other)
  Sender: FDA-Public Use
  Company Number: US-009507513-1210USA006110

PATIENT
  Age: 32 Year
  Sex: Female
  Weight: 144.22 kg

DRUGS (6)
  1. IMPLANON [Suspect]
     Indication: CONTRACEPTION
     Dosage: 1 DF, UNK
     Route: 059
     Dates: start: 20100315, end: 20120817
  2. LISINOPRIL [Concomitant]
  3. ALBUTEROL [Concomitant]
  4. ADVAIR [Concomitant]
  5. TRICHLOROACETIC ACID [Concomitant]
  6. CITALOPRAM [Concomitant]

REACTIONS (2)
  - Deep vein thrombosis [Recovering/Resolving]
  - Pulmonary embolism [Recovering/Resolving]
